FAERS Safety Report 6711425-3 (Version None)
Quarter: 2010Q2

REPORT INFORMATION
  Report Type: 
  Country: None (occurrence: None)
  Receive Date: 20100505
  Receipt Date: 20100427
  Transmission Date: 20101027
  Serious: Yes (Other)
  Sender: FDA-Public Use
  Company Number: US-JNJFOC-20100110641

PATIENT
  Sex: Male
  Weight: 103.87 kg

DRUGS (2)
  1. LEVAQUIN [Suspect]
     Indication: EPIDIDYMITIS
     Route: 065
     Dates: start: 20090801, end: 20090814
  2. LEVAQUIN [Suspect]
     Indication: URINARY TRACT INFECTION
     Route: 065
     Dates: start: 20090801, end: 20090814

REACTIONS (3)
  - LIGAMENT RUPTURE [None]
  - SKELETAL INJURY [None]
  - TENDON RUPTURE [None]
